FAERS Safety Report 5464901-8 (Version None)
Quarter: 2007Q3

REPORT INFORMATION
  Report Type: 
  Country: None (occurrence: None)
  Receive Date: 20070921
  Receipt Date: 20070910
  Transmission Date: 20080115
  Serious: Yes (Other)
  Sender: FDA-Public Use
  Company Number: US-PFIZER INC-2007076493

PATIENT

DRUGS (1)
  1. LYRICA [Suspect]

REACTIONS (3)
  - CONVULSION [None]
  - INTENTIONAL DRUG MISUSE [None]
  - MUSCLE TWITCHING [None]
